FAERS Safety Report 15962407 (Version 1)
Quarter: 2019Q1

REPORT INFORMATION
  Report Type: Report from Study
  Country: US (occurrence: US)
  Receive Date: 20190214
  Receipt Date: 20190214
  Transmission Date: 20190417
  Serious: Yes (Death)
  Sender: FDA-Public Use
  Company Number: US-TAIHO ONCOLOGY  INC-EU-2019-00451

PATIENT
  Age: 78 Year
  Sex: Male

DRUGS (13)
  1. LONSURF [Suspect]
     Active Substance: TIPIRACIL HYDROCHLORIDE\TRIFLURIDINE
     Indication: PRODUCT USED FOR UNKNOWN INDICATION
     Dosage: CURRENT CYCLE UNKNOWN, DISCONTINUED ON AN UNKNOWN DATE
     Route: 048
     Dates: start: 20181213
  2. TYLENOL [Concomitant]
     Active Substance: ACETAMINOPHEN
     Dosage: NI
  3. PLAQUENIL [Concomitant]
     Active Substance: HYDROXYCHLOROQUINE SULFATE
     Dosage: NI
  4. BIOTIN [Concomitant]
     Active Substance: BIOTIN
     Dosage: NI
  5. DOXYCYCL HYC [Concomitant]
     Dosage: NI
  6. ZINC. [Concomitant]
     Active Substance: ZINC
     Dosage: NI
  7. SYSTANE GEL [Concomitant]
     Dosage: GEL
  8. PRENATAL-U [Concomitant]
     Active Substance: MINERALS\VITAMINS
     Dosage: NI
  9. SPIRONOLACT [Concomitant]
     Active Substance: SPIRONOLACTONE
     Dosage: NI
  10. TURMERIC [Concomitant]
     Active Substance: HERBALS\TURMERIC
     Dosage: NI
  11. KRILL OIL [Concomitant]
     Active Substance: DIETARY SUPPLEMENT
     Dosage: NI
  12. FLONASE [Concomitant]
     Active Substance: FLUTICASONE PROPIONATE
     Dosage: NI
  13. MYRBETRIQ [Concomitant]
     Active Substance: MIRABEGRON
     Dosage: NI

REACTIONS (1)
  - Death [Fatal]

NARRATIVE: CASE EVENT DATE: 20190203
